FAERS Safety Report 5370262-5 (Version None)
Quarter: 2007Q2

REPORT INFORMATION
  Report Type: 
  Country: None (occurrence: None)
  Receive Date: 20070614
  Receipt Date: 20070319
  Transmission Date: 20071010
  Serious: No
  Sender: FDA-Public Use
  Company Number: BDI-009257

PATIENT
  Age: 37 Year
  Sex: Female

DRUGS (2)
  1. MULTIHANCE MULTIPACK [Suspect]
     Indication: DEAFNESS
     Dosage: 15 ML ONCE IV
     Route: 042
     Dates: start: 20070309, end: 20070309
  2. MULTIHANCE MULTIPACK [Suspect]
     Indication: NUCLEAR MAGNETIC RESONANCE IMAGING
     Dosage: 15 ML ONCE IV
     Route: 042
     Dates: start: 20070309, end: 20070309

REACTIONS (1)
  - URTICARIA [None]
